FAERS Safety Report 8202281-5 (Version None)
Quarter: 2012Q1

REPORT INFORMATION
  Report Type: 
  Country: None (occurrence: None)
  Receive Date: 20120312
  Receipt Date: 20120302
  Transmission Date: 20120608
  Serious: Yes (Other)
  Sender: FDA-Public Use
  Company Number: US-ELI_LILLY_AND_COMPANY-US201201006433

PATIENT
  Sex: Female
  Weight: 94.785 kg

DRUGS (2)
  1. HUMALOG MIX 75/25 [Suspect]
     Indication: DIABETES MELLITUS
     Dosage: 45 U, BID
     Route: 058
  2. HUMALOG MIX 75/25 [Suspect]
     Dosage: 45 U, BID
     Route: 058

REACTIONS (4)
  - INJECTION SITE HAEMATOMA [None]
  - DIABETIC RETINOPATHY [None]
  - VITREOUS HAEMORRHAGE [None]
  - INJECTION SITE PAIN [None]
